FAERS Safety Report 23067883 (Version 3)
Quarter: 2024Q1

REPORT INFORMATION
  Report Type: Report from Study
  Country: US (occurrence: US)
  Receive Date: 20231016
  Receipt Date: 20240316
  Transmission Date: 20240410
  Serious: Yes (Other)
  Sender: FDA-Public Use
  Company Number: US-002147023-NVSC2023US221572

PATIENT
  Sex: Male

DRUGS (1)
  1. ENTRESTO [Suspect]
     Active Substance: SACUBITRIL\VALSARTAN
     Indication: Cardiac failure
     Dosage: UNK UNK, BID
     Route: 048

REACTIONS (7)
  - Cardiac failure [Unknown]
  - Narcolepsy [Unknown]
  - Loss of consciousness [Unknown]
  - Ejection fraction abnormal [Unknown]
  - Aneurysm [Unknown]
  - Dizziness [Unknown]
  - Dehydration [Unknown]
